FAERS Safety Report 10023838 (Version 2)
Quarter: 2014Q2

REPORT INFORMATION
  Report Type: Spontaneous
  Country: IE (occurrence: IE)
  Receive Date: 20140320
  Receipt Date: 20140428
  Transmission Date: 20141212
  Serious: Yes (Death)
  Sender: FDA-Public Use
  Company Number: IE-AMGEN-IRLSP2014018722

PATIENT
  Sex: Female

DRUGS (6)
  1. PROLIA [Suspect]
     Indication: OSTEOPOROSIS
     Dosage: 60 MG, Q6MO
     Route: 058
     Dates: start: 201101
  2. ATORVAS [Concomitant]
     Dosage: 10 MG, QD
     Route: 048
  3. ELTROXIN [Concomitant]
     Dosage: 100 MG, QD
     Route: 048
  4. NUPRIN [Concomitant]
     Dosage: 75 MG, QD
     Route: 048
  5. CENTYL K [Concomitant]
     Dosage: UNK UNK, QD
     Route: 048
  6. NEPRAMEL [Concomitant]
     Dosage: 40 MG, QD
     Route: 048

REACTIONS (1)
  - Death [Fatal]
